FAERS Safety Report 21653485 (Version 1)
Quarter: 2022Q4

REPORT INFORMATION
  Report Type: Spontaneous
  Country: CN (occurrence: CN)
  Receive Date: 20221128
  Receipt Date: 20221128
  Transmission Date: 20230113
  Serious: Yes (Other)
  Sender: FDA-Public Use
  Company Number: CN-SUN PHARMACEUTICAL INDUSTRIES LTD-2022R1-365832

PATIENT
  Age: 19 Year
  Sex: Female

DRUGS (5)
  1. DOXORUBICIN [Suspect]
     Active Substance: DOXORUBICIN
     Indication: Histiocytic sarcoma
     Dosage: UNK
     Route: 065
     Dates: start: 20171208
  2. VINCRISTINE [Suspect]
     Active Substance: VINCRISTINE
     Indication: Histiocytic sarcoma
     Dosage: UNK
     Route: 065
     Dates: start: 20171208
  3. CYCLOPHOSPHAMIDE [Suspect]
     Active Substance: CYCLOPHOSPHAMIDE
     Indication: Histiocytic sarcoma
     Dosage: UNK
     Route: 065
     Dates: start: 20171208
  4. ETOPOSIDE [Suspect]
     Active Substance: ETOPOSIDE
     Indication: Histiocytic sarcoma
     Dosage: UNK
     Route: 065
     Dates: start: 20171208
  5. PREDNISONE [Suspect]
     Active Substance: PREDNISONE
     Indication: Histiocytic sarcoma
     Dosage: UNK
     Route: 065
     Dates: start: 20171208

REACTIONS (1)
  - Therapy non-responder [Unknown]
